FAERS Safety Report 10338515 (Version 1)
Quarter: 2014Q3

REPORT INFORMATION
  Report Type: Report from Study
  Country: CA (occurrence: None)
  Receive Date: 20140721
  Receipt Date: 20140721
  Transmission Date: 20150326
  Serious: Yes (Other)
  Sender: FDA-Public Use
  Company Number: CA-016338

PATIENT
  Age: 80 Year
  Sex: Male

DRUGS (1)
  1. FIRMAGON [Suspect]
     Active Substance: DEGARELIX ACETATE
     Indication: PROSTATE CANCER
     Route: 058
     Dates: start: 20130412

REACTIONS (4)
  - Tremor [None]
  - Chills [None]
  - Nodule [None]
  - Tooth fracture [None]

NARRATIVE: CASE EVENT DATE: 20140606
